FAERS Safety Report 15243777 (Version 9)
Quarter: 2022Q4

REPORT INFORMATION
  Report Type: Report from Study
  Country: JP (occurrence: None)
  Receive Date: 20180806
  Receipt Date: 20221018
  Transmission Date: 20230113
  Serious: Yes (Hospitalization)
  Sender: FDA-Public Use
  Company Number: JP-ROCHE-2163285

PATIENT
  Age: 54 Year
  Sex: Female
  Weight: 54.3 kg

DRUGS (8)
  1. ATEZOLIZUMAB [Suspect]
     Active Substance: ATEZOLIZUMAB
     Indication: Renal cell carcinoma
     Dosage: DATE OF MOST RECENT DOSE OF BLINDED ATEZOLIZUMAB PRIOR TO AE ONSET 11/JUL/2018?START TIME OF MOST RE
     Route: 042
     Dates: start: 20180214
  2. TELMISARTAN [Concomitant]
     Active Substance: TELMISARTAN
     Route: 048
  3. ATORVASTATIN [Concomitant]
     Active Substance: ATORVASTATIN
     Route: 048
  4. PATANOL [Concomitant]
     Active Substance: OLOPATADINE HYDROCHLORIDE
     Dosage: DOSE: 2 OTHER
     Route: 047
     Dates: start: 20180305
  5. CARBOCYSTEINE [Concomitant]
     Active Substance: CARBOCYSTEINE
     Route: 048
     Dates: start: 20180511
  6. FLUTICASONE PROPIONATE\FORMOTEROL FUMARATE [Concomitant]
     Active Substance: FLUTICASONE PROPIONATE\FORMOTEROL FUMARATE
     Dosage: DOSE: 4 OTHER
     Route: 055
     Dates: start: 20180522
  7. GLYCOSAMINOGLYCANS [Concomitant]
     Active Substance: GLYCOSAMINOGLYCANS
     Dosage: DOSE: OTHER
     Route: 061
     Dates: start: 20180530
  8. MONTELUKAST [Concomitant]
     Active Substance: MONTELUKAST SODIUM
     Route: 048
     Dates: start: 20180531

REACTIONS (1)
  - Eosinophilic colitis [Recovered/Resolved]

NARRATIVE: CASE EVENT DATE: 20180713
